FAERS Safety Report 7242935-0 (Version None)
Quarter: 2011Q1

REPORT INFORMATION
  Report Type: 
  Country: None (occurrence: None)
  Receive Date: 20110125
  Receipt Date: 20110120
  Transmission Date: 20110831
  Serious: Yes (Hospitalization)
  Sender: FDA-Public Use
  Company Number: NL-ABBOTT-11P-114-0699875-00

PATIENT
  Age: 74 Year
  Sex: Male

DRUGS (2)
  1. DEPAKENE [Suspect]
     Indication: GRAND MAL CONVULSION
     Route: 048
     Dates: start: 20090825, end: 20101224
  2. RITUXIMAB [Concomitant]
     Indication: PRODUCT USED FOR UNKNOWN INDICATION

REACTIONS (4)
  - HYPOTHERMIA [None]
  - HYPOVENTILATION [None]
  - BRADYPHRENIA [None]
  - MUSCULAR WEAKNESS [None]
